FAERS Safety Report 5191131-X (Version None)
Quarter: 2006Q4

REPORT INFORMATION
  Report Type: 
  Country: None (occurrence: None)
  Receive Date: 20061226
  Receipt Date: 20060704
  Transmission Date: 20070319
  Serious: Yes (Other)
  Sender: FDA-Public Use
  Company Number: PHBS2006BE10188

PATIENT
  Age: 29 Year
  Sex: Female
  Weight: 60 kg

DRUGS (5)
  1. NEORAL [Suspect]
     Indication: PSORIASIS
     Dosage: 2.5 MG/KG/D
     Route: 048
     Dates: start: 20060124, end: 20060227
  2. NEORAL [Suspect]
     Dosage: 3.5 MG/KG/D
     Route: 048
     Dates: start: 20060228, end: 20060425
  3. NEORAL [Suspect]
     Dosage: 4.5 MG/KG/D
     Route: 048
     Dates: start: 20060426, end: 20060523
  4. NEORAL [Suspect]
     Dosage: 50
     Route: 048
     Dates: start: 20060524
  5. NUVARING [Suspect]

REACTIONS (3)
  - ABORTION INDUCED [None]
  - DRUG EXPOSURE DURING PREGNANCY [None]
  - PREGNANCY WITH CONTRACEPTIVE DEVICE [None]
